FAERS Safety Report 6172510-0 (Version None)
Quarter: 2009Q2

REPORT INFORMATION
  Report Type: 
  Country: None (occurrence: None)
  Receive Date: 20090429
  Receipt Date: 20090421
  Transmission Date: 20091009
  Serious: Yes (Hospitalization)
  Sender: FDA-Public Use
  Company Number: US-GILEAD-2009-0021583

PATIENT
  Sex: Male

DRUGS (3)
  1. TRUVADA [Suspect]
     Indication: HIV INFECTION
     Route: 048
     Dates: start: 20080312
  2. ATAZANAVIR SULFATE [Concomitant]
     Route: 048
     Dates: start: 20060613
  3. RITONAVIR [Concomitant]
     Route: 048
     Dates: start: 20060613

REACTIONS (1)
  - LYMPHADENOPATHY [None]
